FAERS Safety Report 7691733-2 (Version None)
Quarter: 2011Q3

REPORT INFORMATION
  Report Type: 
  Country: None (occurrence: None)
  Receive Date: 20110818
  Receipt Date: 20110810
  Transmission Date: 20111222
  Serious: Yes (Hospitalization)
  Sender: FDA-Public Use
  Company Number: US-GLAXOSMITHKLINE-A0941266A

PATIENT
  Age: 81 Year
  Sex: Female
  Weight: 61.7 kg

DRUGS (19)
  1. AUGMENTIN '125' [Concomitant]
  2. LEVAQUIN [Concomitant]
  3. METOPROLOL [Concomitant]
  4. LASIX [Concomitant]
  5. PRILOSEC [Concomitant]
  6. NEURONTIN [Concomitant]
  7. LYRICA [Concomitant]
  8. VALTREX [Concomitant]
  9. AMIODARONE HCL [Concomitant]
  10. MULTI-VITAMIN [Concomitant]
  11. PREDNISONE [Suspect]
     Route: 065
  12. SYNTHROID [Concomitant]
  13. GUAIFENESIN [Concomitant]
  14. MELPHALAN HYDROCHLORIDE [Suspect]
     Indication: MULTIPLE MYELOMA
     Dosage: 14MG CYCLIC
     Route: 048
  15. MUCINEX [Concomitant]
  16. HYDROCODONE [Concomitant]
  17. FLUCONAZOLE [Concomitant]
  18. POTASSIUM [Concomitant]
  19. ALBUTEROL SULFATE AUTOHALER [Concomitant]

REACTIONS (4)
  - COUGH [None]
  - ILL-DEFINED DISORDER [None]
  - PNEUMONIA [None]
  - ASPIRATION [None]
